FAERS Safety Report 4788442-6 (Version None)
Quarter: 2005Q3

REPORT INFORMATION
  Report Type: 
  Country: None (occurrence: None)
  Receive Date: 20050915
  Receipt Date: 20041021
  Transmission Date: 20060218
  Serious: Yes (Hospitalization)
  Sender: FDA-Public Use
  Company Number: MK200410-0243-1

PATIENT
  Age: 63 Year
  Sex: Female

DRUGS (6)
  1. PAMELOR [Suspect]
     Dosage: 10MG
  2. PROZAC [Suspect]
  3. ASPIRIN [Concomitant]
  4. TRIAMTERENE AND HYDROCHLOROTHIAZIDE [Concomitant]
  5. LIPITOR [Concomitant]
  6. LOTREL [Concomitant]

REACTIONS (8)
  - AGITATION [None]
  - ANXIETY [None]
  - DYSGEUSIA [None]
  - NAUSEA [None]
  - PANIC REACTION [None]
  - PARAESTHESIA [None]
  - STOMACH DISCOMFORT [None]
  - TACHYCARDIA [None]
